FAERS Safety Report 10248226 (Version 1)
Quarter: 2014Q2

REPORT INFORMATION
  Report Type: Spontaneous
  Country: TR (occurrence: TR)
  Receive Date: 20140620
  Receipt Date: 20140620
  Transmission Date: 20141212
  Serious: Yes (Other)
  Sender: FDA-Public Use
  Company Number: PHHY2014TR073965

PATIENT
  Age: 6 Year
  Sex: Female

DRUGS (1)
  1. MYCOPHENOLATE MOFETIL [Suspect]

REACTIONS (3)
  - Benign intracranial hypertension [Recovered/Resolved]
  - Headache [Recovered/Resolved]
  - Papilloedema [Recovered/Resolved]
